FAERS Safety Report 6193527-6 (Version None)
Quarter: 2009Q2

REPORT INFORMATION
  Report Type: 
  Country: None (occurrence: None)
  Receive Date: 20090518
  Receipt Date: 20090504
  Transmission Date: 20091009
  Serious: Yes (Life-Threatening, Hospitalization)
  Sender: FDA-Public Use
  Company Number: EMADSS2003001928

PATIENT
  Sex: Female

DRUGS (3)
  1. REMICADE [Suspect]
     Indication: CROHN'S DISEASE
     Route: 042
     Dates: start: 20021213
  2. IMURAN [Concomitant]
     Route: 065
     Dates: start: 20011211
  3. PREDNISOLONE [Concomitant]
     Route: 065
     Dates: start: 20011221

REACTIONS (1)
  - MENINGITIS LISTERIA [None]
